FAERS Safety Report 6783148-6 (Version None)
Quarter: 2010Q2

REPORT INFORMATION
  Report Type: 
  Country: None (occurrence: None)
  Receive Date: 20100622
  Receipt Date: 20100610
  Transmission Date: 20101027
  Serious: Yes (Other)
  Sender: FDA-Public Use
  Company Number: FR-PFIZER INC-2010073212

PATIENT
  Age: 30 Year
  Sex: Female

DRUGS (7)
  1. ZOLOFT [Suspect]
     Indication: DEPRESSION
     Dosage: 50 MG, 2X/DAY
     Dates: start: 20100301
  2. ABILIFY [Concomitant]
     Dosage: UNK
     Dates: end: 20100529
  3. RISPERDAL [Concomitant]
     Dosage: UNK
  4. TRANXENE [Concomitant]
     Dosage: UNK
  5. NOCTAMID [Concomitant]
     Dosage: UNK
  6. THERALENE [Concomitant]
     Dosage: UNK
  7. HARMONET [Concomitant]
     Dosage: UNK

REACTIONS (3)
  - BLOOD TRIGLYCERIDES INCREASED [None]
  - HIGH DENSITY LIPOPROTEIN DECREASED [None]
  - LOW DENSITY LIPOPROTEIN INCREASED [None]
